FAERS Safety Report 14245301 (Version 1)
Quarter: 2017Q4

REPORT INFORMATION
  Report Type: Spontaneous
  Country: US (occurrence: US)
  Receive Date: 20171202
  Receipt Date: 20171202
  Transmission Date: 20180321
  Serious: No
  Sender: FDA-Public Use
  Company Number: US-ENDO PHARMACEUTICALS INC-2017-002508

PATIENT
  Age: 62 Year
  Sex: Male
  Weight: 95.24 kg

DRUGS (2)
  1. XIAFLEX [Suspect]
     Active Substance: COLLAGENASE CLOSTRIDIUM HISTOLYTICUM
     Indication: PEYRONIE^S DISEASE
     Dosage: 0.58 MG, SECOND INJECTION GIVEN 5 DAYS APART
     Route: 026
     Dates: start: 201704
  2. XIAFLEX [Suspect]
     Active Substance: COLLAGENASE CLOSTRIDIUM HISTOLYTICUM
     Dosage: 0.58 MG, FIRST INJECTION, FIRST CYCLE
     Route: 026
     Dates: start: 201704

REACTIONS (3)
  - Drug effect decreased [Unknown]
  - Headache [Recovered/Resolved]
  - Inappropriate schedule of drug administration [Unknown]

NARRATIVE: CASE EVENT DATE: 201704
